FAERS Safety Report 10196613 (Version 2)
Quarter: 2014Q2

REPORT INFORMATION
  Report Type: Spontaneous
  Country: IT (occurrence: IT)
  Receive Date: 20140527
  Receipt Date: 20140527
  Transmission Date: 20141212
  Serious: Yes (Other)
  Sender: FDA-Public Use
  Company Number: IT-BAYER-2014-020957

PATIENT
  Age: 81 Year
  Sex: Female

DRUGS (7)
  1. CIPROFLOXACIN [Suspect]
     Indication: CYSTITIS
     Dosage: DAILY DOSE 1 DF
     Route: 048
     Dates: start: 20140107, end: 20140110
  2. CARDIOASPIRIN [Concomitant]
     Route: 048
  3. NORVASC [Concomitant]
     Dosage: UNK
     Route: 048
  4. TRITTICO [Concomitant]
     Dosage: DAILY DOSE 15 GTT
     Route: 048
  5. TRIATEC [Concomitant]
     Dosage: DAILY DOSE 2 DF
     Route: 048
  6. PEPTAZOL [Concomitant]
     Dosage: DAILY DOSE 1 DF
     Route: 048
  7. CLEXANE [Concomitant]
     Dosage: UNK
     Route: 058

REACTIONS (5)
  - Salivary hypersecretion [Recovering/Resolving]
  - Rash [Recovering/Resolving]
  - Loss of consciousness [Recovering/Resolving]
  - Drug hypersensitivity [Recovering/Resolving]
  - Syncope [Recovering/Resolving]
